FAERS Safety Report 4525017-8 (Version None)
Quarter: 2004Q4

REPORT INFORMATION
  Report Type: 
  Country: None (occurrence: None)
  Receive Date: 20041117
  Receipt Date: 20031010
  Transmission Date: 20050328
  Serious: Yes (Other)
  Sender: FDA-Public Use
  Company Number: C2003-2672.01

PATIENT
  Age: 22 Year
  Sex: Male

DRUGS (6)
  1. CLOZAPINE [Suspect]
     Dosage: 100MG HS, ORAL
     Route: 048
     Dates: start: 20030823
  2. BENZTROPINE MESYLATE [Concomitant]
  3. DOCUSATE SODIUM [Concomitant]
  4. LAMOTRIGINE [Concomitant]
  5. LANSOPRAZOLE [Concomitant]
  6. VENLAFAXINE HCL [Concomitant]

REACTIONS (1)
  - LEUKOPENIA [None]
